FAERS Safety Report 12978720 (Version 1)
Quarter: 2016Q4

REPORT INFORMATION
  Report Type: Spontaneous
  Country: GB (occurrence: GB)
  Receive Date: 20161128
  Receipt Date: 20161128
  Transmission Date: 20170207
  Serious: Yes (Hospitalization, Disabling, Other)
  Sender: FDA-Public Use
  Company Number: GB-ELI_LILLY_AND_COMPANY-GB201611005814

PATIENT
  Age: 31 Year
  Sex: Female
  Weight: 85.72 kg

DRUGS (1)
  1. DULOXETINE HYDROCHLORIDE. [Suspect]
     Active Substance: DULOXETINE HYDROCHLORIDE
     Indication: POST-TRAUMATIC STRESS DISORDER
     Dosage: 120 MG, UNKNOWN
     Route: 048
     Dates: start: 20140712, end: 20160202

REACTIONS (15)
  - Suicidal ideation [Unknown]
  - Withdrawal syndrome [Recovered/Resolved]
  - Nausea [Unknown]
  - Disorientation [Recovered/Resolved]
  - Restless legs syndrome [Recovered/Resolved]
  - Dyskinesia [Recovered/Resolved]
  - Off label use [Unknown]
  - Tremor [Recovered/Resolved]
  - Paraesthesia [Unknown]
  - Tinnitus [Recovered/Resolved]
  - Headache [Recovered/Resolved]
  - Vomiting [Recovered/Resolved]
  - Urinary retention [Recovered/Resolved]
  - Influenza like illness [Recovered/Resolved]
  - Pyrexia [Recovered/Resolved]

NARRATIVE: CASE EVENT DATE: 20160202
